FAERS Safety Report 6439006-X (Version None)
Quarter: 2009Q4

REPORT INFORMATION
  Report Type: 
  Country: None (occurrence: None)
  Receive Date: 20091113
  Receipt Date: 20091105
  Transmission Date: 20100525
  Serious: Yes (Other)
  Sender: FDA-Public Use
  Company Number: US-ROCHE-667264

PATIENT
  Sex: Female
  Weight: 54.4 kg

DRUGS (6)
  1. CELLCEPT [Suspect]
     Dosage: 3 IN THE MORNING AND 2 IN EVENING
     Route: 048
     Dates: start: 19990101
  2. CELLCEPT [Suspect]
     Route: 048
  3. MYCOPHENOLATE MOFETIL [Suspect]
     Dosage: IN THE MORNING AND 2 IN EVENING
     Route: 048
     Dates: start: 20090701
  4. GENGRAF [Concomitant]
  5. ACYCLOVIR SODIUM [Concomitant]
  6. LEVOTHROID [Concomitant]

REACTIONS (2)
  - ARRHYTHMIA [None]
  - PALPITATIONS [None]
